FAERS Safety Report 7074981-4 (Version None)
Quarter: 2010Q4

REPORT INFORMATION
  Report Type: 
  Country: None (occurrence: None)
  Receive Date: 20101029
  Receipt Date: 20100106
  Transmission Date: 20110411
  Serious: No
  Sender: FDA-Public Use
  Company Number: US-WYE-H12902310

PATIENT
  Age: 70 Year
  Sex: Male
  Weight: 74.91 kg

DRUGS (4)
  1. ADVIL PM [Suspect]
     Indication: PAIN IN EXTREMITY
     Dosage: 1 CAPLET NIGHTLY
     Route: 048
     Dates: start: 20091201, end: 20100105
  2. ADVIL PM [Suspect]
     Indication: INSOMNIA
  3. AVAPRO [Concomitant]
  4. GLUCOTROL [Concomitant]

REACTIONS (1)
  - DRUG INEFFECTIVE [None]
